FAERS Safety Report 19272778 (Version 1)
Quarter: 2021Q2

REPORT INFORMATION
  Report Type: Report from Study
  Country: CA (occurrence: CA)
  Receive Date: 20210518
  Receipt Date: 20210518
  Transmission Date: 20210717
  Serious: Yes (Other)
  Sender: FDA-Public Use
  Company Number: CA-TAKEDA-2021TUS030526

PATIENT
  Age: 56 Year
  Sex: Male

DRUGS (4)
  1. PREDNISONE. [Concomitant]
     Active Substance: PREDNISONE
     Dosage: UNK
  2. VEDOLIZUMAB [Suspect]
     Active Substance: VEDOLIZUMAB
     Indication: COLITIS ULCERATIVE
     Dosage: 300 MILLIGRAM
     Route: 042
     Dates: start: 20210426
  3. MEZAVANT [Concomitant]
     Active Substance: MESALAMINE
     Dosage: UNK
  4. IMURAN [Concomitant]
     Active Substance: AZATHIOPRINE
     Dosage: UNK

REACTIONS (3)
  - Rash [Recovered/Resolved]
  - Frequent bowel movements [Unknown]
  - Haematochezia [Unknown]

NARRATIVE: CASE EVENT DATE: 20210426
